FAERS Safety Report 5036497-6 (Version None)
Quarter: 2006Q2

REPORT INFORMATION
  Report Type: 
  Country: None (occurrence: None)
  Receive Date: 20060613
  Receipt Date: 20060323
  Transmission Date: 20061013
  Serious: Yes (Other)
  Sender: FDA-Public Use
  Company Number: US-JNJFOC-20060306418

PATIENT
  Age: 41 Year
  Sex: Female

DRUGS (2)
  1. HALDOL DECANOATE (HALOPERIDOL DECANOATE) INJECTION [Suspect]
     Indication: PSYCHOTIC DISORDER
     Dosage: 1 DOSE(S), INTRAMUSCULAR
     Route: 030
     Dates: start: 20060109, end: 20060109
  2. ATIVAN [Concomitant]

REACTIONS (4)
  - CONVULSION [None]
  - DYSKINESIA [None]
  - DYSPNOEA [None]
  - VISION BLURRED [None]
